FAERS Safety Report 10882179 (Version 1)
Quarter: 2015Q1

REPORT INFORMATION
  Report Type: Spontaneous
  Country: US (occurrence: None)
  Receive Date: 20150225
  Receipt Date: 20150225
  Transmission Date: 20150721
  Serious: Yes (Disabling)
  Sender: FDA-Public Use
  Company Number: None

PATIENT
  Age: 74 Year
  Sex: Male
  Weight: 87.09 kg

DRUGS (10)
  1. REMICADE [Suspect]
     Active Substance: INFLIXIMAB
     Indication: COLITIS ULCERATIVE
     Dates: start: 20140901, end: 20141202
  2. MULTIVITAMEN [Concomitant]
  3. FISH OIL [Concomitant]
     Active Substance: FISH OIL
  4. PRO AIR ALBUTEROL RESCUE INHALER [Concomitant]
  5. ALBUTEROL NEBULIZER [Concomitant]
     Active Substance: ALBUTEROL
  6. MONTELEUCAST SODIUM [Concomitant]
  7. NIACIN. [Concomitant]
     Active Substance: NIACIN
  8. BABY ASPIRIN [Concomitant]
     Active Substance: ASPIRIN
  9. SAW PALMETTO [Concomitant]
     Active Substance: SAW PALMETTO
  10. RED YEAST RICE [Concomitant]
     Active Substance: DIETARY SUPPLEMENT

REACTIONS (6)
  - Myalgia [None]
  - Dyspnoea [None]
  - Refusal of treatment by patient [None]
  - Fatigue [None]
  - Arthralgia [None]
  - Pain in extremity [None]

NARRATIVE: CASE EVENT DATE: 20150113
